FAERS Safety Report 5151157-9 (Version None)
Quarter: 2006Q4

REPORT INFORMATION
  Report Type: 
  Country: None (occurrence: None)
  Receive Date: 20061114
  Receipt Date: 20061114
  Transmission Date: 20070319
  Serious: No
  Sender: FDA-Public Use
  Company Number: None

PATIENT
  Age: 57 Year
  Sex: Female
  Weight: 95.2554 kg

DRUGS (2)
  1. ZOCOR [Suspect]
     Dosage: 80 MG 1 QD
     Dates: start: 20010101
  2. LIPITOR [Suspect]
     Dosage: 80 MG 1 QD
     Dates: start: 20010101

REACTIONS (4)
  - MUSCLE SPASMS [None]
  - MYALGIA [None]
  - PAIN [None]
  - RASH [None]
